FAERS Safety Report 5155547-X (Version None)
Quarter: 2006Q4

REPORT INFORMATION
  Report Type: 
  Country: None (occurrence: None)
  Receive Date: 20061114
  Receipt Date: 20061101
  Transmission Date: 20070319
  Serious: Yes (Hospitalization)
  Sender: FDA-Public Use
  Company Number: ALK_0032_2006

PATIENT
  Age: 25 Year
  Sex: Female

DRUGS (9)
  1. VIVITROL [Suspect]
     Indication: ALCOHOLISM
     Dosage: 380 MG QM IM
     Route: 030
     Dates: start: 20060809
  2. AMBIEN [Concomitant]
  3. ATIVAN [Concomitant]
  4. TEGRETOL [Concomitant]
  5. LIPITOR [Concomitant]
  6. FLEXERIL [Concomitant]
  7. PREVACID [Concomitant]
  8. SEROQUEL [Concomitant]
  9. LITHOBID [Concomitant]

REACTIONS (6)
  - AGITATION [None]
  - ANXIETY [None]
  - BIPOLAR I DISORDER [None]
  - CONDITION AGGRAVATED [None]
  - OVERDOSE [None]
  - SUICIDAL IDEATION [None]
